FAERS Safety Report 5614551-5 (Version None)
Quarter: 2008Q1

REPORT INFORMATION
  Report Type: 
  Country: None (occurrence: None)
  Receive Date: 20080205
  Receipt Date: 20080110
  Transmission Date: 20080703
  Serious: No
  Sender: FDA-Public Use
  Company Number: US-BOEHRINGER INGELHEIM GMBH, GERMANY-2007-BP-25011BP

PATIENT
  Sex: Male

DRUGS (8)
  1. SPIRIVA [Suspect]
     Indication: CHRONIC OBSTRUCTIVE PULMONARY DISEASE
  2. ADVAIR DISKUS 100/50 [Concomitant]
  3. FLECAINIDE ACETATE [Concomitant]
  4. NIASPAN [Concomitant]
  5. WARFARIN SODIUM [Concomitant]
  6. PREDNISONE TAB [Concomitant]
  7. COMBIVENT [Concomitant]
  8. NEBULIZAR - IPRATROPIUM BROMIDE, ALBUTEROL SULFATE [Concomitant]

REACTIONS (4)
  - ASTHMA [None]
  - LUNG DISORDER [None]
  - NOCTURNAL DYSPNOEA [None]
  - PULMONARY CONGESTION [None]
